FAERS Safety Report 7064729-1 (Version None)
Quarter: 2010Q4

REPORT INFORMATION
  Report Type: 
  Country: None (occurrence: None)
  Receive Date: 20101027
  Receipt Date: 19770215
  Transmission Date: 20110411
  Serious: Yes (Death)
  Sender: FDA-Public Use
  Company Number: US-ROCHE-176

PATIENT
  Sex: Female
  Weight: 66.4 kg

DRUGS (2)
  1. NAPROSYN [Suspect]
     Route: 048
     Dates: start: 19761101, end: 19770101
  2. MOTRIN [Concomitant]
     Route: 048
     Dates: start: 19750901, end: 19761101

REACTIONS (4)
  - ANAEMIA [None]
  - APLASTIC ANAEMIA [None]
  - DEATH [None]
  - EOSINOPHILIA [None]
